FAERS Safety Report 10110963 (Version 1)
Quarter: 2014Q2

REPORT INFORMATION
  Report Type: Spontaneous
  Country: US (occurrence: None)
  Receive Date: 20140424
  Receipt Date: 20140424
  Transmission Date: 20141212
  Serious: No
  Sender: FDA-Public Use
  Company Number: None

PATIENT
  Age: 62 Year
  Sex: Female
  Weight: 65.77 kg

DRUGS (1)
  1. ZOLPIDEM [Suspect]
     Indication: INSOMNIA
     Dosage: 1 PILL ONCE DIALY TAKEN BY MOUTH
     Route: 048
     Dates: start: 20140422

REACTIONS (2)
  - Feeling jittery [None]
  - Muscle contractions involuntary [None]
